FAERS Safety Report 22616555 (Version 1)
Quarter: 2023Q2

REPORT INFORMATION
  Report Type: Spontaneous
  Country: ES (occurrence: ES)
  Receive Date: 20230619
  Receipt Date: 20230619
  Transmission Date: 20230721
  Serious: Yes (Hospitalization, Disabling, Other)
  Sender: FDA-Public Use
  Company Number: None

PATIENT
  Age: 47 Year
  Sex: Male
  Weight: 59 kg

DRUGS (3)
  1. OPDIVO [Suspect]
     Active Substance: NIVOLUMAB
     Indication: Adenocarcinoma gastric
     Dosage: 240MG
     Route: 042
     Dates: start: 20230222, end: 20230419
  2. FLUOROURACIL [Suspect]
     Active Substance: FLUOROURACIL
     Indication: Adenocarcinoma gastric
     Dosage: 700MG
     Route: 042
     Dates: start: 20230222, end: 20230419
  3. OXALIPLATIN [Suspect]
     Active Substance: OXALIPLATIN
     Indication: Adenocarcinoma gastric
     Dosage: 120MG
     Route: 042
     Dates: start: 20230222, end: 20230419

REACTIONS (3)
  - Neuritis cranial [Not Recovered/Not Resolved]
  - Neurosensory hypoacusis [Not Recovered/Not Resolved]
  - Brachial plexopathy [Not Recovered/Not Resolved]

NARRATIVE: CASE EVENT DATE: 20230402
